FAERS Safety Report 19986556 (Version 1)
Quarter: 2021Q4

REPORT INFORMATION
  Report Type: Spontaneous
  Country: US (occurrence: US)
  Receive Date: 20211022
  Receipt Date: 20211022
  Transmission Date: 20220303
  Serious: Yes (Other)
  Sender: FDA-Public Use
  Company Number: US-ELI_LILLY_AND_COMPANY-US202110004285

PATIENT
  Sex: Female

DRUGS (4)
  1. GLUCAGON [Suspect]
     Active Substance: GLUCAGON
     Indication: Hypoglycaemic unconsciousness
     Dosage: UNK UNK, UNKNOWN
     Route: 065
     Dates: start: 2019
  2. HUMALOG [Suspect]
     Active Substance: INSULIN LISPRO
     Indication: Product used for unknown indication
     Dosage: 10 U, UNKNOWN
  3. BASAGLAR [Suspect]
     Active Substance: INSULIN GLARGINE
     Indication: Product used for unknown indication
     Dosage: 60 U, UNKNOWN
     Route: 065
  4. NOVOLOG [Concomitant]
     Active Substance: INSULIN ASPART
     Indication: Product used for unknown indication

REACTIONS (4)
  - Hypoglycaemic unconsciousness [Unknown]
  - Memory impairment [Unknown]
  - Blood glucose decreased [Unknown]
  - Incorrect dose administered [Unknown]

NARRATIVE: CASE EVENT DATE: 20190101
